FAERS Safety Report 7529416-1 (Version None)
Quarter: 2011Q2

REPORT INFORMATION
  Report Type: 
  Country: None (occurrence: None)
  Receive Date: 20110531
  Receipt Date: 20110513
  Transmission Date: 20111010
  Serious: Yes (Hospitalization, Other)
  Sender: FDA-Public Use
  Company Number: AUR-APL-2009-01626

PATIENT
  Age: 4 Year
  Sex: Male

DRUGS (12)
  1. CYTARABINE [Suspect]
     Indication: ACUTE LYMPHOCYTIC LEUKAEMIA
     Dosage: SEE NARRATIVE
     Dates: start: 20090424
  2. ZOSYN [Suspect]
     Dates: start: 20090101
  3. BACTRIM [Suspect]
     Dates: start: 20090101
  4. SPRYCEL [Suspect]
     Dosage: SEE NARRATIVE
     Dates: start: 20090424
  5. METHOTREXATE [Suspect]
     Indication: ACUTE LEUKAEMIA
     Dosage: SEE NARRATIVE
     Dates: start: 20090424
  6. NEURONTIN [Suspect]
     Dates: start: 20090101
  7. ONDANSETRON [Suspect]
     Dates: start: 20090101
  8. HYDROCORTISONE [Suspect]
     Indication: ACUTE LYMPHOCYTIC LEUKAEMIA
     Dosage: SEE NARRATIVE
     Dates: start: 20090424
  9. VINCRISTINE [Suspect]
     Indication: ACUTE LYMPHOCYTIC LEUKAEMIA
     Dosage: SEE NARRATIVE
     Dates: start: 20090424
  10. GRANISETRON [Suspect]
     Dates: start: 20090101
  11. METHYLPREDNISOLONE [Suspect]
     Indication: ACUTE LYMPHOCYTIC LEUKAEMIA
     Dosage: SEE NARRATIVE - IV
     Route: 042
     Dates: start: 20090424
  12. DAUNORUBUCIN [Suspect]
     Indication: ACUTE LYMPHOCYTIC LEUKAEMIA
     Dates: start: 20090424

REACTIONS (9)
  - ALANINE AMINOTRANSFERASE INCREASED [None]
  - HEPATOMEGALY [None]
  - VIRAEMIA [None]
  - GAMMA-GLUTAMYLTRANSFERASE INCREASED [None]
  - LYMPHOPENIA [None]
  - HEPATITIS ACUTE [None]
  - HEPATIC STEATOSIS [None]
  - ADENOVIRUS INFECTION [None]
  - ASPARTATE AMINOTRANSFERASE INCREASED [None]
